FAERS Safety Report 20666699 (Version 1)
Quarter: 2022Q2

REPORT INFORMATION
  Report Type: Spontaneous
  Country: US (occurrence: US)
  Receive Date: 20220403
  Receipt Date: 20220403
  Transmission Date: 20220721
  Serious: No
  Sender: FDA-Public Use
  Company Number: US-AMGEN-USASP2022051660

PATIENT
  Age: 59 Year
  Sex: Female

DRUGS (1)
  1. REPATHA [Suspect]
     Active Substance: EVOLOCUMAB
     Indication: Blood cholesterol increased
     Dosage: UNK UNK, UNK
     Route: 065
     Dates: start: 20220314

REACTIONS (5)
  - Abdominal distension [Unknown]
  - Lethargy [Unknown]
  - Asthenia [Unknown]
  - Flatulence [Unknown]
  - Constipation [Unknown]

NARRATIVE: CASE EVENT DATE: 20220321
